FAERS Safety Report 18810902 (Version 1)
Quarter: 2021Q1

REPORT INFORMATION
  Report Type: Report from Study
  Country: US (occurrence: US)
  Receive Date: 20210129
  Receipt Date: 20210129
  Transmission Date: 20210419
  Serious: Yes (Hospitalization, Disabling)
  Sender: FDA-Public Use
  Company Number: US-MYLANLABS-2021M1005860

PATIENT
  Age: 56 Year
  Sex: Female

DRUGS (4)
  1. GLYCERYL TRINITRATE [Suspect]
     Active Substance: NITROGLYCERIN
     Indication: PERIPHERAL ISCHAEMIA
     Dosage: NITROGLYCERIN PASTE APPLIED...
     Route: 061
  2. NOREPINEPHRINE. [Suspect]
     Active Substance: NOREPINEPHRINE
     Indication: ACUTE MYOCARDIAL INFARCTION
     Route: 065
  3. BOTOX [Suspect]
     Active Substance: ONABOTULINUMTOXINA
     Indication: PERIPHERAL ISCHAEMIA
     Route: 065
  4. EPINEPHRINE. [Suspect]
     Active Substance: EPINEPHRINE
     Indication: ACUTE MYOCARDIAL INFARCTION
     Route: 065

REACTIONS (2)
  - Drug ineffective [Unknown]
  - Peripheral ischaemia [Not Recovered/Not Resolved]
